FAERS Safety Report 6935030-9 (Version None)
Quarter: 2010Q3

REPORT INFORMATION
  Report Type: 
  Country: None (occurrence: None)
  Receive Date: 20100822
  Receipt Date: 20100810
  Transmission Date: 20110219
  Serious: Yes (Hospitalization)
  Sender: FDA-Public Use
  Company Number: PHHO2010KR12198

PATIENT
  Sex: Male
  Weight: 64 kg

DRUGS (5)
  1. ICL670A ICL+DISTAB [Suspect]
     Indication: APLASTIC ANAEMIA
     Dosage: 1250 MG, UNK
     Route: 048
     Dates: start: 20100513, end: 20100524
  2. ICL670A ICL+DISTAB [Suspect]
     Dosage: 1250 MG, UNK
     Route: 048
     Dates: start: 20100618, end: 20100720
  3. ICL670A ICL+DISTAB [Suspect]
     Dosage: 750 MG, UNK
     Route: 048
     Dates: start: 20100721, end: 20100805
  4. BEECOM [Concomitant]
     Indication: ANAEMIA
     Dosage: UNK
  5. FOLIC ACID [Concomitant]
     Indication: ANAEMIA
     Dosage: UNK

REACTIONS (6)
  - CHILLS [None]
  - DECREASED APPETITE [None]
  - HAEMATOCHEZIA [None]
  - NAUSEA [None]
  - PNEUMONIA KLEBSIELLA [None]
  - PYREXIA [None]
